FAERS Safety Report 6813250-1 (Version None)
Quarter: 2010Q3

REPORT INFORMATION
  Report Type: 
  Country: None (occurrence: None)
  Receive Date: 20100701
  Receipt Date: 20100623
  Transmission Date: 20110219
  Serious: Yes (Other)
  Sender: FDA-Public Use
  Company Number: GR-ABBOTT-10P-066-0627362-00

PATIENT
  Age: 48 Year
  Sex: Male
  Weight: 72 kg

DRUGS (6)
  1. HUMIRA [Suspect]
     Indication: PSORIASIS
     Dosage: FIRST DOSE
     Route: 058
     Dates: start: 20100115
  2. HUMIRA [Suspect]
     Dosage: SECOND DOSE
     Route: 058
  3. FOCETRIA [Suspect]
     Indication: H1N1 INFLUENZA
     Route: 058
     Dates: start: 20091204, end: 20091204
  4. FOCETRIA [Suspect]
     Indication: INFLUENZA IMMUNISATION
  5. METHOTREXATE SODIUM [Concomitant]
     Indication: PSORIASIS
     Route: 048
     Dates: start: 20091213, end: 20100211
  6. COPALIA [Concomitant]
     Indication: HYPERTENSION
     Dates: start: 20100101

REACTIONS (6)
  - CUTANEOUS VASCULITIS [None]
  - PAIN [None]
  - SKIN LESION [None]
  - SKIN ULCER [None]
  - STAPHYLOCOCCAL SKIN INFECTION [None]
  - WOUND CONTAMINATION [None]
